FAERS Safety Report 15958089 (Version 1)
Quarter: 2019Q1

REPORT INFORMATION
  Report Type: Report from Study
  Country: US (occurrence: US)
  Receive Date: 20190213
  Receipt Date: 20190213
  Transmission Date: 20190417
  Serious: Yes (Hospitalization)
  Sender: FDA-Public Use
  Company Number: US-ACTELION-A-NJ2016-138528

PATIENT
  Age: 52 Year
  Sex: Male
  Weight: 106.58 kg

DRUGS (5)
  1. RAMELTEON [Concomitant]
     Active Substance: RAMELTEON
     Dosage: 8 MG, UNK
  2. OPSUMIT [Suspect]
     Active Substance: MACITENTAN
     Indication: PULMONARY HYPERTENSION
     Dosage: 10 MG, QD
     Route: 048
     Dates: start: 20141215
  3. OXYGEN. [Concomitant]
     Active Substance: OXYGEN
     Dosage: 6 L/MIN, UNK
  4. ADCIRCA [Concomitant]
     Active Substance: TADALAFIL
  5. REMODULIN [Suspect]
     Active Substance: TREPROSTINIL
     Indication: PRODUCT USED FOR UNKNOWN INDICATION
     Route: 065

REACTIONS (18)
  - Condition aggravated [Unknown]
  - Abdominal discomfort [Recovered/Resolved]
  - Dyspnoea exertional [Unknown]
  - Exercise tolerance decreased [Unknown]
  - Headache [Recovered/Resolved]
  - Dyspnoea at rest [Unknown]
  - Syncope [Unknown]
  - Catheter removal [Unknown]
  - Catheter site inflammation [Unknown]
  - Cough [Unknown]
  - Vomiting [Unknown]
  - Ascites [Unknown]
  - Injection site erythema [Unknown]
  - Catheter site warmth [Unknown]
  - Fatigue [Unknown]
  - Heart rate increased [Unknown]
  - Rash [Unknown]
  - Chest pain [Unknown]

NARRATIVE: CASE EVENT DATE: 20181225
